FAERS Safety Report 8912400 (Version 1)
Quarter: 2012Q4

REPORT INFORMATION
  Report Type: 
  Country: DE (occurrence: DE)
  Receive Date: 20121116
  Receipt Date: 20121116
  Transmission Date: 20130627
  Serious: Yes (Other)
  Sender: FDA-Public Use
  Company Number: DE-RANBAXY-2012RR-61938

PATIENT
  Age: 45 Year
  Sex: Male
  Weight: 71 kg

DRUGS (5)
  1. SIMVASTATIN [Suspect]
     Indication: CORONARY ARTERY DISEASE
     Dosage: 40 mg, qd
     Route: 048
     Dates: start: 20120329, end: 20120430
  2. BRILIQUE [Suspect]
     Indication: CORONARY ARTERIAL STENT INSERTION
     Dosage: 90 mg, bid
     Route: 048
     Dates: start: 20120329
  3. ASS 100 [Concomitant]
     Indication: CORONARY ARTERY DISEASE
     Dosage: 100 mg, qd
     Route: 048
     Dates: start: 20120329
  4. METOPROLOL [Concomitant]
     Indication: HYPERTENSION
     Dosage: 47.5 mg, bid
     Route: 048
     Dates: start: 20120329
  5. RAMIPRIL [Concomitant]
     Indication: HYPERTENSION
     Dosage: 5 mg, qd
     Route: 048
     Dates: start: 20120329

REACTIONS (4)
  - Drug level increased [Recovering/Resolving]
  - Blood creatine phosphokinase increased [Recovering/Resolving]
  - Transaminases increased [Recovering/Resolving]
  - Pain in extremity [Recovering/Resolving]
